FAERS Safety Report 9259584 (Version 4)
Quarter: 2014Q1

REPORT INFORMATION
  Report Type: Spontaneous
  Country: US (occurrence: US)
  Receive Date: 20130429
  Receipt Date: 20140206
  Transmission Date: 20141002
  Serious: Yes (Other)
  Sender: FDA-Public Use
  Company Number: US-ASTRAZENECA-2013SE27428

PATIENT
  Age: 61 Year
  Sex: Female

DRUGS (39)
  1. NEXIUM [Suspect]
     Indication: DYSPEPSIA
     Route: 048
     Dates: start: 1990, end: 2012
  2. NEXIUM [Suspect]
     Indication: DYSPEPSIA
     Route: 048
     Dates: start: 1998
  3. NEXIUM [Suspect]
     Indication: DYSPEPSIA
     Route: 048
     Dates: start: 20041201
  4. NEXIUM [Suspect]
     Indication: DYSPEPSIA
     Route: 048
     Dates: start: 20080129
  5. NEXIUM [Suspect]
     Indication: DYSPEPSIA
     Route: 048
     Dates: start: 20121027
  6. PREDNISONE [Concomitant]
     Dates: start: 20080613
  7. PREDNISONE [Concomitant]
     Dates: start: 20090416
  8. PLAVIX [Concomitant]
     Indication: CARDIAC DISORDER
     Dates: start: 20080612
  9. HYDROCODONE APAP [Concomitant]
     Dosage: 5-500
     Dates: start: 20080613
  10. SIMVASTATIN [Concomitant]
     Dates: start: 20080626
  11. KLOR-CON [Concomitant]
     Dates: start: 20091005
  12. LYRICA [Concomitant]
     Dates: start: 20100929
  13. VIT D2/ VITAMIN D [Concomitant]
     Indication: OSTEOPOROSIS
     Dosage: 1.25 MG (50000 UNITS)
     Dates: start: 20101210
  14. LISINOPRIL [Concomitant]
     Indication: HYPERTENSION
     Dates: start: 20110301
  15. FOSAMAX [Concomitant]
     Indication: OSTEOPOROSIS
     Route: 048
     Dates: start: 20080129
  16. FLUTICASONE [Concomitant]
     Dates: start: 20080815
  17. PEPCID [Concomitant]
     Dosage: AS DIRECTION
     Dates: start: 2007
  18. ZANTAC [Concomitant]
     Dosage: AS DIRECTION
     Dates: start: 2007
  19. TUMS [Concomitant]
  20. ALKA SELTZER [Concomitant]
  21. PEPTO BISMOL [Concomitant]
  22. ROLAIDS [Concomitant]
  23. MYLANTA [Concomitant]
  24. AMITRIPTYLINE [Concomitant]
     Indication: DEPRESSION
  25. CALCITROL [Concomitant]
     Indication: OSTEOPOROSIS
  26. CETRIZINE [Concomitant]
     Indication: HYPERSENSITIVITY
  27. CLONAZEPAM [Concomitant]
     Indication: CONVULSION
  28. CYMBALTA [Concomitant]
     Indication: PAIN
  29. DICYCLOMINE [Concomitant]
     Indication: DYSPEPSIA
  30. GABAPENTIN [Concomitant]
     Indication: CONVULSION
  31. MIDODRINE [Concomitant]
     Indication: HYPOTENSION
  32. OLANZAPINE [Concomitant]
     Indication: PSYCHOTIC DISORDER
  33. PRAVASTATIN [Concomitant]
     Indication: CARDIAC DISORDER
  34. ROPINIROLE [Concomitant]
     Indication: RESTLESS LEGS SYNDROME
  35. CYCLOBENZAPRINE [Concomitant]
     Dates: start: 20070912
  36. QUININE SULFATE [Concomitant]
     Dates: start: 20060601
  37. EFFEXOR [Concomitant]
     Dates: start: 20060417
  38. METOCLOPRAM [Concomitant]
     Dates: start: 20050831
  39. SERTRALINE [Concomitant]
     Dates: start: 20080521

REACTIONS (14)
  - Arthritis [Unknown]
  - Osteopenia [Unknown]
  - Cataract [Unknown]
  - Depression [Unknown]
  - Vitamin D deficiency [Unknown]
  - Osteoarthritis [Unknown]
  - Fall [Unknown]
  - Rib fracture [Unknown]
  - Bone density decreased [Unknown]
  - Hip fracture [Unknown]
  - Osteoporosis [Unknown]
  - Bone disorder [Unknown]
  - Hand fracture [Unknown]
  - Upper limb fracture [Unknown]
